FAERS Safety Report 5010944-8 (Version None)
Quarter: 2006Q2

REPORT INFORMATION
  Report Type: 
  Country: None (occurrence: None)
  Receive Date: 20060523
  Receipt Date: 20060523
  Transmission Date: 20061013
  Serious: Yes (Hospitalization)
  Sender: FDA-Public Use
  Company Number: None

PATIENT
  Age: 80 Year
  Sex: Male

DRUGS (2)
  1. VISIPAQUE [Suspect]
     Indication: HAEMATURIA
     Dosage: 7/CC
     Dates: start: 20041001
  2. GASTROVIEW [Suspect]
     Dosage: 20CC
     Dates: start: 20041001

REACTIONS (6)
  - BLOOD POTASSIUM INCREASED [None]
  - ELECTROCARDIOGRAM T WAVE PEAKED [None]
  - HAEMODIALYSIS [None]
  - INFUSION RELATED REACTION [None]
  - PULMONARY OEDEMA [None]
  - RENAL FAILURE [None]
